FAERS Safety Report 19424499 (Version 6)
Quarter: 2022Q4

REPORT INFORMATION
  Report Type: Report from Study
  Country: CN (occurrence: CN)
  Receive Date: 20210616
  Receipt Date: 20221018
  Transmission Date: 20230112
  Serious: Yes (Hospitalization, Other)
  Sender: FDA-Public Use
  Company Number: CN-BRISTOL-MYERS SQUIBB COMPANY-BMS-2021-057279

PATIENT
  Age: 64 Year
  Sex: Female
  Weight: 69 kg

DRUGS (16)
  1. CISPLATIN [Suspect]
     Active Substance: CISPLATIN
     Indication: Bladder cancer
     Dosage: ACTION TAKEN: DOSE DELAYED?THIS WAS THE ONLY DOSE OF STUDY THERAPY THAT THE PATIENT RECEIVED PRIOR T
     Route: 042
     Dates: start: 20210602
  2. GEMCITABINE HYDROCHLORIDE [Suspect]
     Active Substance: GEMCITABINE HYDROCHLORIDE
     Indication: Bladder cancer
     Dosage: ACTION TAKEN: DOSE DELAYED?THIS WAS THE ONLY DOSE OF STUDY THERAPY THAT THE PATIENT RECEIVED PRIOR T
     Route: 042
     Dates: start: 20210602
  3. ASPIRIN [Concomitant]
     Active Substance: ASPIRIN
     Indication: Product used for unknown indication
     Dosage: AS ANTI-THROMBOTIC
     Route: 065
     Dates: start: 202106, end: 202106
  4. LEVOFLOXACIN [Concomitant]
     Active Substance: LEVOFLOXACIN
     Indication: Product used for unknown indication
     Dosage: AS ANTI-INFECTION
     Route: 065
  5. EDARAVONE [Concomitant]
     Active Substance: EDARAVONE
     Indication: Product used for unknown indication
     Dosage: EDARAVONE AND DEXBORNEOL CONCENTRATED SOLUTION FOR INJECTION?TO IMPROVE BRAIN MICROCIRCULATION
     Route: 065
     Dates: start: 202106, end: 202106
  6. ACEGLUTAMIDE [Concomitant]
     Active Substance: ACEGLUTAMIDE
     Indication: Thrombosis
     Route: 065
     Dates: start: 202106, end: 202106
  7. LACTULOSE [Concomitant]
     Active Substance: LACTULOSE
     Indication: Constipation
     Route: 065
  8. HEPARIN CALCIUM [Concomitant]
     Active Substance: HEPARIN CALCIUM
     Indication: Product used for unknown indication
     Dosage: AS ANTI-THROMBOTIC
     Route: 065
     Dates: start: 202106, end: 202106
  9. ILAPRAZOLE [Concomitant]
     Active Substance: ILAPRAZOLE
     Indication: Product used for unknown indication
     Dosage: TO INHIBIT GASTRIC ACID
     Route: 065
  10. CLOPIDOGREL BISULFATE [Concomitant]
     Active Substance: CLOPIDOGREL BISULFATE
     Indication: Thrombosis
     Route: 065
     Dates: start: 202106, end: 202106
  11. SOLIFENACIN [Concomitant]
     Active Substance: SOLIFENACIN
     Indication: Thrombosis
     Dosage: 1 DOSAGE FORM = 0.15 PNA
     Route: 065
  12. NIMESULIDE [Concomitant]
     Active Substance: NIMESULIDE
     Indication: Analgesic therapy
     Route: 065
  13. ATORVASTATIN CALCIUM [Concomitant]
     Active Substance: ATORVASTATIN CALCIUM
     Indication: Hypercholesterolaemia
     Route: 065
     Dates: start: 202106, end: 202106
  14. UROKINASE [Concomitant]
     Active Substance: UROKINASE
     Indication: Thrombosis
     Dosage: 1 DOSAGE FORM = 100000 UNITS NOS
     Route: 065
     Dates: start: 202106, end: 202106
  15. GLYCERINE ENEMA [Concomitant]
     Indication: Constipation
     Dosage: ENEMA GLYCERINI INVIGORATING
     Route: 065
  16. URINARY KALLIDINOGENASE [Concomitant]
     Indication: Product used for unknown indication
     Dosage: 1 DOSAGE FORM = 0.15 PNA
     Route: 065
     Dates: start: 202106, end: 202106

REACTIONS (1)
  - Cerebrovascular accident [Recovered/Resolved]

NARRATIVE: CASE EVENT DATE: 20210609
